FAERS Safety Report 4769850-6 (Version None)
Quarter: 2005Q3

REPORT INFORMATION
  Report Type: 
  Country: None (occurrence: None)
  Receive Date: 20050912
  Receipt Date: 20050810
  Transmission Date: 20060218
  Serious: No
  Sender: FDA-Public Use
  Company Number: 2005-01713

PATIENT
  Age: 72 Year
  Sex: Male
  Weight: 75.7 kg

DRUGS (5)
  1. VELCADE [Suspect]
     Indication: MULTIPLE MYELOMA
     Dosage: IV BOLUS
     Route: 042
     Dates: start: 20050501
  2. ZOLOFT [Concomitant]
  3. ZOCOR [Concomitant]
  4. ASA (ACETYLSALICYCLIC ACID) [Concomitant]
  5. MULTIVITAMINS (ERGOCALCIFEROL, PANTHENOL, NICOTINAMIDE, RIBOFLAVIN, TH [Concomitant]

REACTIONS (2)
  - ASTHENIA [None]
  - FATIGUE [None]
